FAERS Safety Report 22245896 (Version 3)
Quarter: 2024Q4

REPORT INFORMATION
  Report Type: Spontaneous
  Country: US (occurrence: US)
  Receive Date: 20230424
  Receipt Date: 20241008
  Transmission Date: 20250114
  Serious: Yes (Other)
  Sender: PFIZER
  Company Number: US-PFIZER INC-PV202300071017

PATIENT
  Age: 65 Year
  Sex: Female

DRUGS (1)
  1. XELJANZ XR [Suspect]
     Active Substance: TOFACITINIB CITRATE
     Indication: Rheumatoid arthritis
     Dosage: 11 MG, DAILY
     Route: 048

REACTIONS (27)
  - Sjogren^s syndrome [Unknown]
  - Melaena [Unknown]
  - Haematochezia [Unknown]
  - Illness [Unknown]
  - Condition aggravated [Unknown]
  - Therapeutic product effect decreased [Unknown]
  - Abdominal pain [Unknown]
  - Change of bowel habit [Unknown]
  - Sleep disorder [Unknown]
  - Pyrexia [Unknown]
  - Infection [Unknown]
  - Musculoskeletal stiffness [Unknown]
  - Visual impairment [Unknown]
  - Stomatitis [Unknown]
  - Oral disorder [Unknown]
  - Skin lesion [Unknown]
  - Chest pain [Unknown]
  - Cough [Unknown]
  - Exercise tolerance decreased [Unknown]
  - Blood pressure abnormal [Unknown]
  - Jaundice [Unknown]
  - Urinary tract disorder [Unknown]
  - Blood glucose abnormal [Unknown]
  - Peripheral swelling [Unknown]
  - Arthralgia [Unknown]
  - Peripheral swelling [Unknown]
  - Pain [Unknown]
